FAERS Safety Report 10287056 (Version 3)
Quarter: 2014Q3

REPORT INFORMATION
  Report Type: Report from Study
  Country: US (occurrence: US)
  Receive Date: 20140709
  Receipt Date: 20140805
  Transmission Date: 20150326
  Serious: Yes (Other)
  Sender: FDA-Public Use
  Company Number: PHEH2014US013329

PATIENT
  Age: 29 Year
  Sex: Female

DRUGS (9)
  1. GILENYA [Suspect]
     Active Substance: FINGOLIMOD HYDROCHLORIDE
     Indication: MULTIPLE SCLEROSIS
     Dosage: 0.5 MG, DAILY
     Route: 048
     Dates: start: 20120831
  2. VITAMIN D3 [Concomitant]
     Active Substance: CHOLECALCIFEROL
  3. BACLOFEN. [Concomitant]
     Active Substance: BACLOFEN
  4. AMPYRA [Concomitant]
     Active Substance: DALFAMPRIDINE
  5. EFFEXOR [Concomitant]
     Active Substance: VENLAFAXINE HYDROCHLORIDE
  6. ATIVAN [Concomitant]
     Active Substance: LORAZEPAM
  7. LEVAQUIN [Concomitant]
     Active Substance: LEVOFLOXACIN
  8. NUVIGIL [Concomitant]
     Active Substance: ARMODAFINIL
  9. SOLU-MEDROL [Concomitant]
     Active Substance: METHYLPREDNISOLONE SODIUM SUCCINATE

REACTIONS (24)
  - Pain in extremity [Unknown]
  - Balance disorder [Unknown]
  - Fatigue [Unknown]
  - Sensory loss [Unknown]
  - Paraesthesia [Unknown]
  - Intention tremor [Unknown]
  - Urinary tract infection [Unknown]
  - Coordination abnormal [Unknown]
  - Vitamin D decreased [Unknown]
  - Multiple sclerosis relapse [Unknown]
  - Postural tremor [Unknown]
  - Central nervous system lesion [Unknown]
  - Fall [Unknown]
  - Ophthalmoplegia [Unknown]
  - Asthenia [Unknown]
  - Musculoskeletal stiffness [Unknown]
  - Tremor [Unknown]
  - Cerebrovascular disorder [Unknown]
  - Cognitive disorder [Unknown]
  - Ataxia [Unknown]
  - Cystitis [Unknown]
  - Depression [Unknown]
  - Muscular weakness [Unknown]
  - Gait disturbance [Unknown]

NARRATIVE: CASE EVENT DATE: 20130805
